FAERS Safety Report 9844335 (Version 2)
Quarter: 2014Q1

REPORT INFORMATION
  Report Type: Report from Study
  Country: US (occurrence: US)
  Receive Date: 20140127
  Receipt Date: 20140213
  Transmission Date: 20141002
  Serious: Yes (Death, Hospitalization)
  Sender: FDA-Public Use
  Company Number: US-BRISTOL-MYERS SQUIBB COMPANY-20068581

PATIENT
  Age: 83 Year
  Sex: Male
  Weight: 71.13 kg

DRUGS (8)
  1. IPILIMUMAB [Suspect]
     Indication: MALIGNANT MELANOMA
     Dosage: IND THERAPY: 10OMG/KG IV OVER 90MN Q3WKSX4DOSES,MAINTENANCE:ON WKS 24,36,48 AND 60,TOTAL DOSE:728MG
     Dates: start: 20131219
  2. ASPIRIN [Concomitant]
  3. PREDNISONE [Concomitant]
  4. FINASTERIDE [Concomitant]
  5. LISINOPRIL [Concomitant]
  6. METFORMIN [Concomitant]
  7. METOPROLOL [Concomitant]
  8. SIMVASTATIN [Concomitant]

REACTIONS (4)
  - Cardiac arrest [Fatal]
  - Arteritis [Unknown]
  - Blindness [Not Recovered/Not Resolved]
  - Gastrointestinal haemorrhage [Not Recovered/Not Resolved]
